FAERS Safety Report 8836888 (Version 2)
Quarter: 2012Q4

REPORT INFORMATION
  Report Type: 
  Country: AR (occurrence: AR)
  Receive Date: 20121012
  Receipt Date: 20121102
  Transmission Date: 20130627
  Serious: Yes (Other)
  Sender: FDA-Public Use
  Company Number: AR-AMGEN-ARGSP2012063366

PATIENT
  Age: 77 Year
  Sex: Male
  Weight: 77 kg

DRUGS (10)
  1. MIMPARA [Suspect]
     Indication: HYPERPARATHYROIDISM SECONDARY
     Dosage: 30 mg, qd
     Route: 048
     Dates: start: 20120520, end: 20120524
  2. AMLODIPINE [Concomitant]
     Dosage: 5 mg, UNK
     Dates: start: 20090110
  3. SEVELAMER CARBONATE [Concomitant]
     Dosage: 6 DF, qd, 300 mg
     Dates: start: 20111010
  4. FOLIC ACID [Concomitant]
     Dosage: 10 mg, UNK
  5. OMEPRAZOL                          /00661201/ [Concomitant]
     Dosage: 20 mg, UNK
     Dates: start: 20111010
  6. MEMANTINE [Concomitant]
     Dosage: 10 mg, UNK
  7. CYANOCOBALAMIN [Concomitant]
     Dosage: 5000 mug, UNK
  8. THIAMINE HYDROCHLORIDE [Concomitant]
     Dosage: 125 mg, UNK
  9. PYRIDOXINE HCL [Concomitant]
     Dosage: 140 mg, UNK
  10. EPOETIN ALFA [Concomitant]
     Dosage: 12000 unit, qwk
     Dates: start: 20111010

REACTIONS (1)
  - Pemphigoid [Recovered/Resolved]
